FAERS Safety Report 9443300 (Version 1)
Quarter: 2013Q3

REPORT INFORMATION
  Report Type: Spontaneous
  Country: US (occurrence: US)
  Receive Date: 20130806
  Receipt Date: 20130806
  Transmission Date: 20140515
  Serious: Yes (Hospitalization)
  Sender: FDA-Public Use
  Company Number: US-BAYER-2013-093114

PATIENT
  Age: 53 Year
  Sex: Female

DRUGS (3)
  1. MOXIFLOXACIN ORAL [Suspect]
     Indication: PNEUMONIA
     Dosage: 400 MG, ONCE
  2. WARFARIN [Suspect]
     Indication: ATRIAL FIBRILLATION
     Dosage: 5 MG DAILY
  3. CLINDAMYCIN [Concomitant]
     Indication: CELLULITIS
     Dosage: 600 MG, TID
     Route: 042

REACTIONS (3)
  - International normalised ratio increased [Recovered/Resolved]
  - Mental status changes [None]
  - Drug interaction [None]
